FAERS Safety Report 16088006 (Version 2)
Quarter: 2019Q1

REPORT INFORMATION
  Report Type: Spontaneous
  Country: AU (occurrence: AU)
  Receive Date: 20190319
  Receipt Date: 20190325
  Transmission Date: 20190418
  Serious: Yes (Other)
  Sender: FDA-Public Use
  Company Number: AU-BRISTOL-MYERS SQUIBB COMPANY-BMS-2019-025250

PATIENT
  Age: 83 Year
  Sex: Male

DRUGS (1)
  1. ELIQUIS [Suspect]
     Active Substance: APIXABAN
     Indication: HEART VALVE REPLACEMENT
     Dosage: 2.5 MILLIGRAM, BID
     Route: 065
     Dates: start: 201811

REACTIONS (5)
  - Product use in unapproved indication [Unknown]
  - Product storage error [Unknown]
  - Drug ineffective [Unknown]
  - Cerebral artery embolism [Unknown]
  - Blindness transient [Unknown]

NARRATIVE: CASE EVENT DATE: 201901
